FAERS Safety Report 16111860 (Version 1)
Quarter: 2019Q2

REPORT INFORMATION
  Report Type: Spontaneous
  Country: US (occurrence: US)
  Receive Date: 20190322
  Receipt Date: 20190322
  Transmission Date: 20190711
  Serious: Yes (Death, Hospitalization, Disabling)
  Sender: FDA-Public Use
  Company Number: None

PATIENT
  Sex: Male

DRUGS (1)
  1. LOSARTAN. [Suspect]
     Active Substance: LOSARTAN

REACTIONS (6)
  - Disease complication [None]
  - Urinary tract infection [None]
  - Sepsis [None]
  - Cerebrovascular accident [None]
  - Cardiac disorder [None]
  - Recalled product administered [None]
